FAERS Safety Report 13093120 (Version 2)
Quarter: 2017Q1

REPORT INFORMATION
  Report Type: Spontaneous
  Country: US (occurrence: US)
  Receive Date: 20170106
  Receipt Date: 20170203
  Transmission Date: 20170428
  Serious: Yes (Death, Hospitalization, Other)
  Sender: FDA-Public Use
  Company Number: US-PFIZER INC-2016256514

PATIENT
  Age: 79 Year
  Sex: Male
  Weight: 48.98 kg

DRUGS (16)
  1. SENNA-S [Concomitant]
     Active Substance: DOCUSATE SODIUM\SENNOSIDES
     Indication: CONSTIPATION
     Dosage: 2 DF, 2X/DAY [DOCUSATE SODIUM: 50 MG / SENNOSIDE A+B: 8.6 MG]
     Route: 048
  2. MOTRIN [Concomitant]
     Active Substance: IBUPROFEN
     Dosage: UNK, AS NEEDED (TAKE 200-400 MG 2 TIMES DAILY)
     Route: 048
     Dates: start: 20160927
  3. NICOTROL [Concomitant]
     Active Substance: NICOTINE
     Indication: TOBACCO ABUSE
     Dosage: 10 MG, AS NEEDED (EVERY HOUR)
     Route: 048
     Dates: start: 20161107
  4. PROTONIX [Concomitant]
     Active Substance: PANTOPRAZOLE SODIUM
     Dosage: 40 MG, 1X/DAY (BEFORE A MEAL)
     Route: 048
  5. SUTENT [Suspect]
     Active Substance: SUNITINIB MALATE
     Dosage: 50 MG, CYCLIC (DAY 21/28D)
     Route: 048
     Dates: start: 20160515, end: 20161213
  6. NICODERM CQ [Concomitant]
     Active Substance: NICOTINE
     Dosage: 21 MG/24H, 1X/DAY (APPLY 1 PATCH ON DRY, CLEAN, HAIRLESS SKIN)
     Route: 062
  7. HABITROL [Concomitant]
     Active Substance: NICOTINE
     Dosage: 21 MG/24H, 1X/DAY (APPLY 1 PATCH ON DRY, CLEAN, HAIRLESS SKIN)
     Route: 062
  8. SPIRIVA [Concomitant]
     Active Substance: TIOTROPIUM BROMIDE MONOHYDRATE
     Dosage: 18 UG, 1X/DAY (INHALE 18 MCG)
     Route: 048
     Dates: start: 20160503
  9. SYMBICORT [Concomitant]
     Active Substance: BUDESONIDE\FORMOTEROL FUMARATE DIHYDRATE
     Dosage: UNK, 2X/DAY [BUDESONIDE: 80 MCG, FORMOTEROL FUMARATE: 4.5 MCG], (INHALE 2 PUFFS BY MOUTH)
     Route: 048
     Dates: start: 20160503
  10. ROXANOL [Concomitant]
     Active Substance: MORPHINE SULFATE
     Indication: DYSPNOEA
     Dosage: 5 MG, AS NEEDED (EVERY 2 HOURS)
     Route: 048
  11. ADVIL [Concomitant]
     Active Substance: IBUPROFEN
     Dosage: UNK, AS NEEDED (TAKE 200-400 MG 2 TIMES DAILY)
     Route: 048
     Dates: start: 20160927
  12. SUTENT [Suspect]
     Active Substance: SUNITINIB MALATE
     Indication: RENAL CELL CARCINOMA
     Dosage: 50 MG, CYCLIC (1 CAPSULE DAILY FOR 28 DAYS TO BE FOLLOWED BY TWO WEEKS OFF REPEATED EVERY 6 WEEKS)
     Route: 048
     Dates: start: 201609
  13. PROVENTIL HFA [Concomitant]
     Active Substance: ALBUTEROL SULFATE
     Indication: EMPHYSEMA
     Dosage: UNK, AS NEEDED (INHALE 2 PUFFS BY MOUTH EVERY 4 HOURS IF NEEDED)
     Route: 048
     Dates: start: 20160927
  14. NICOTROL [Concomitant]
     Active Substance: NICOTINE
     Indication: NICOTINE DEPENDENCE
  15. LACTULOSE. [Concomitant]
     Active Substance: LACTULOSE
     Indication: CONSTIPATION
     Dosage: 40 G, 1X/DAY
     Route: 048
  16. ROXANOL [Concomitant]
     Active Substance: MORPHINE SULFATE
     Indication: PAIN

REACTIONS (8)
  - Lactic acidosis [Fatal]
  - Cachexia [Unknown]
  - Dysstasia [Unknown]
  - Feeling abnormal [Unknown]
  - Cerumen impaction [Unknown]
  - Appetite disorder [Unknown]
  - Dehydration [Unknown]
  - Treatment noncompliance [Unknown]

NARRATIVE: CASE EVENT DATE: 20161103
